FAERS Safety Report 5786618-2 (Version None)
Quarter: 2008Q2

REPORT INFORMATION
  Report Type: 
  Country: None (occurrence: None)
  Receive Date: 20080624
  Receipt Date: 20080612
  Transmission Date: 20081010
  Serious: Yes (Other)
  Sender: FDA-Public Use
  Company Number: US-PFIZER INC-2008050324

PATIENT
  Sex: Female
  Weight: 86.2 kg

DRUGS (7)
  1. LYRICA [Suspect]
     Indication: BACK PAIN
     Dates: start: 20080606, end: 20080611
  2. LISINOPRIL AND HYDROCHLOROTHIAZIDE [Suspect]
  3. MONTELUKAST SODIUM [Concomitant]
  4. ALLEGRA [Concomitant]
  5. YASMIN [Concomitant]
  6. SIMVASTATIN [Concomitant]
  7. RITALIN [Concomitant]

REACTIONS (4)
  - BLOOD POTASSIUM DECREASED [None]
  - HEADACHE [None]
  - INTENTIONAL DRUG MISUSE [None]
  - PARALYSIS [None]
